FAERS Safety Report 6473367-0 (Version None)
Quarter: 2009Q4

REPORT INFORMATION
  Report Type: 
  Country: None (occurrence: None)
  Receive Date: 20091204
  Receipt Date: 20091126
  Transmission Date: 20100525
  Serious: Yes (Other)
  Sender: FDA-Public Use
  Company Number: ES-B.I. PHARMACEUTICALS,INC./RIDGEFIELD-2009-ES-00206ES

PATIENT
  Age: 44 Year
  Sex: Female

DRUGS (4)
  1. MIRAPEX [Suspect]
     Indication: RESTLESS LEGS SYNDROME
     Dosage: 0.18 MG
     Route: 048
     Dates: start: 20090211, end: 20090218
  2. ENALAPRIL PHARMAGENUS [Concomitant]
     Route: 048
     Dates: start: 20051230
  3. OMEPRAZOL WINTHROP [Concomitant]
     Route: 048
     Dates: start: 20080916
  4. SEROPRAM [Concomitant]
     Route: 048
     Dates: start: 20050610

REACTIONS (3)
  - HEADACHE [None]
  - HYPERHIDROSIS [None]
  - TACHYCARDIA [None]
